FAERS Safety Report 5303750-8 (Version None)
Quarter: 2007Q2

REPORT INFORMATION
  Report Type: 
  Country: None (occurrence: None)
  Receive Date: 20070420
  Receipt Date: 20070412
  Transmission Date: 20071010
  Serious: Yes (Hospitalization)
  Sender: FDA-Public Use
  Company Number: FR-GENENTECH-240003

PATIENT
  Sex: Male

DRUGS (6)
  1. RITUXIMAB [Suspect]
     Indication: B-CELL LYMPHOMA
     Route: 042
  2. VINCRISTINE [Concomitant]
     Indication: B-CELL LYMPHOMA
     Route: 042
  3. DOXORUBICIN HCL [Concomitant]
     Indication: B-CELL LYMPHOMA
     Route: 042
  4. CYCLOPHOSPHAMIDE [Concomitant]
     Indication: B-CELL LYMPHOMA
     Route: 042
  5. METHOTREXATE [Concomitant]
     Indication: B-CELL LYMPHOMA
     Route: 037
  6. SOLU-MEDROL [Concomitant]
     Indication: B-CELL LYMPHOMA
     Route: 037

REACTIONS (3)
  - CEREBRAL HAEMATOMA [None]
  - PSYCHOTIC DISORDER [None]
  - STATUS EPILEPTICUS [None]
